FAERS Safety Report 22100687 (Version 1)
Quarter: 2023Q1

REPORT INFORMATION
  Report Type: Spontaneous
  Country: US (occurrence: US)
  Receive Date: 20230316
  Receipt Date: 20230316
  Transmission Date: 20230418
  Serious: No
  Sender: FDA-Public Use
  Company Number: US-ELI_LILLY_AND_COMPANY-US202303007531

PATIENT
  Age: 86 Year
  Sex: Male

DRUGS (5)
  1. TRULICITY [Suspect]
     Active Substance: DULAGLUTIDE
     Indication: Type 2 diabetes mellitus
     Dosage: 3 MG, UNKNOWN
     Route: 065
     Dates: start: 202206
  2. DEXAMETHASONE [Concomitant]
     Active Substance: DEXAMETHASONE
     Indication: Product used for unknown indication
     Dosage: UNK, OTHER,RINSE 3X DAILY
     Route: 065
     Dates: start: 202301
  3. NYSTATIN [Concomitant]
     Active Substance: NYSTATIN
     Indication: Product used for unknown indication
  4. FLUCONAZOLE [Concomitant]
     Active Substance: FLUCONAZOLE
     Indication: Product used for unknown indication
     Dosage: UNK, OTHER, 1 TABLET FOR 7 DAYS
     Route: 065
     Dates: start: 20230118
  5. VALACYCLOVIR HYDROCHLORIDE [Concomitant]
     Active Substance: VALACYCLOVIR HYDROCHLORIDE
     Indication: Product used for unknown indication
     Dosage: UNK UNK, OTHER, 1 TABLET PER 7 DAYS
     Route: 065
     Dates: start: 20230126

REACTIONS (4)
  - Oral discomfort [Unknown]
  - Oral pain [Unknown]
  - Salivary hypersecretion [Unknown]
  - Dry mouth [Unknown]

NARRATIVE: CASE EVENT DATE: 20221201
